FAERS Safety Report 23453297 (Version 1)
Quarter: 2024Q1

REPORT INFORMATION
  Report Type: Spontaneous
  Country: US (occurrence: US)
  Receive Date: 20240129
  Receipt Date: 20240129
  Transmission Date: 20240409
  Serious: Yes (Other)
  Sender: FDA-Public Use
  Company Number: US-NOVOPROD-1167532

PATIENT
  Sex: Female

DRUGS (1)
  1. OZEMPIC [Suspect]
     Active Substance: SEMAGLUTIDE
     Indication: Product used for unknown indication
     Dosage: 0.5 MG, QW(EVERY MONDAY)
     Route: 058

REACTIONS (3)
  - Surgery [Recovering/Resolving]
  - Procedural pain [Unknown]
  - Nausea [Unknown]

NARRATIVE: CASE EVENT DATE: 20230612
